FAERS Safety Report 12780021 (Version 1)
Quarter: 2016Q3

REPORT INFORMATION
  Report Type: Spontaneous
  Country: US (occurrence: US)
  Receive Date: 20160925
  Receipt Date: 20160925
  Transmission Date: 20161109
  Serious: Yes (Other)
  Sender: FDA-Public Use
  Company Number: None

PATIENT
  Age: 69 Year
  Sex: Male
  Weight: 99 kg

DRUGS (5)
  1. ZINC [Concomitant]
     Active Substance: ZINC\ZINC CHLORIDE
  2. CURCUMIN [Concomitant]
     Active Substance: CURCUMIN
  3. MAGNESIUM [Concomitant]
     Active Substance: MAGNESIUM
  4. LISINOPRIL. [Suspect]
     Active Substance: LISINOPRIL
     Indication: BLOOD PRESSURE INCREASED
     Route: 048
     Dates: start: 20160301, end: 20160909
  5. MULTIPLE VITAMIN [Concomitant]
     Active Substance: VITAMINS

REACTIONS (6)
  - Syncope [None]
  - Dyspnoea [None]
  - Asthenia [None]
  - Loss of consciousness [None]
  - Myalgia [None]
  - Product use issue [None]

NARRATIVE: CASE EVENT DATE: 20160917
